FAERS Safety Report 4378590-7 (Version None)
Quarter: 2004Q2

REPORT INFORMATION
  Report Type: 
  Country: None (occurrence: None)
  Receive Date: 20040609
  Receipt Date: 20040604
  Transmission Date: 20050107
  Serious: Yes (Death, Hospitalization)
  Sender: FDA-Public Use
  Company Number: OMPQ-PR-0405S-0430

PATIENT
  Age: 47 Year
  Sex: Female
  Weight: 68.0396 kg

DRUGS (2)
  1. OMNIPAQUE (IOHEXOL) [Suspect]
     Indication: BACK PAIN
     Dosage: 10 ML, SINGLE DOSE, I.T.
     Route: 038
     Dates: start: 20040521, end: 20040521
  2. PANTOPRAZOLE (PROTONIX) [Concomitant]

REACTIONS (11)
  - BRAIN DAMAGE [None]
  - BRAIN OEDEMA [None]
  - CARDIO-RESPIRATORY ARREST [None]
  - DISEASE RECURRENCE [None]
  - FEELING ABNORMAL [None]
  - GRAND MAL CONVULSION [None]
  - MULTI-ORGAN FAILURE [None]
  - PRURITUS [None]
  - RETCHING [None]
  - RHABDOMYOLYSIS [None]
  - STATUS EPILEPTICUS [None]
